FAERS Safety Report 9375455 (Version 1)
Quarter: 2013Q2

REPORT INFORMATION
  Report Type: Spontaneous
  Country: CN (occurrence: CN)
  Receive Date: 20130628
  Receipt Date: 20130628
  Transmission Date: 20140414
  Serious: Yes (Hospitalization)
  Sender: FDA-Public Use
  Company Number: CN-ASTRAZENECA-2013SE45576

PATIENT
  Age: 660 Month
  Sex: Female

DRUGS (6)
  1. ATENOLOL [Suspect]
     Indication: HEART RATE INCREASED
     Route: 048
  2. ATENOLOL [Suspect]
     Indication: PALPITATIONS
     Route: 048
  3. ATENOLOL [Suspect]
     Indication: HEART RATE INCREASED
     Route: 048
  4. ATENOLOL [Suspect]
     Indication: PALPITATIONS
     Route: 048
  5. BETALOC [Suspect]
     Indication: TACHYCARDIA
     Route: 048
     Dates: start: 20121001
  6. BETALOC [Suspect]
     Indication: TACHYCARDIA
     Route: 048
     Dates: end: 20121203

REACTIONS (4)
  - Heart rate increased [Recovered/Resolved]
  - Palpitations [Unknown]
  - Suspected counterfeit product [Unknown]
  - Drug effect decreased [Unknown]
